FAERS Safety Report 7723480-2 (Version None)
Quarter: 2011Q3

REPORT INFORMATION
  Report Type: 
  Country: None (occurrence: None)
  Receive Date: 20110901
  Receipt Date: 20110826
  Transmission Date: 20111222
  Serious: No
  Sender: FDA-Public Use
  Company Number: US-PFIZER INC-2011199661

PATIENT
  Age: 60 Year
  Sex: Female
  Weight: 54.422 kg

DRUGS (2)
  1. PRISTIQ [Suspect]
     Indication: DEPRESSION
     Dosage: 50 MG, DAILY
     Route: 048
     Dates: start: 20110819
  2. PRISTIQ [Suspect]
     Indication: ANXIETY

REACTIONS (1)
  - MEDICATION RESIDUE [None]
